FAERS Safety Report 18622224 (Version 1)
Quarter: 2020Q4

REPORT INFORMATION
  Report Type: Spontaneous
  Country: KR (occurrence: KR)
  Receive Date: 20201216
  Receipt Date: 20201216
  Transmission Date: 20210114
  Serious: Yes (Hospitalization)
  Sender: FDA-Public Use
  Company Number: KR-TEVA-2020-KR-1857891

PATIENT
  Age: 62 Year
  Sex: Female

DRUGS (10)
  1. OXALIPLATIN. [Suspect]
     Active Substance: OXALIPLATIN
     Indication: MALIGNANT ANORECTAL NEOPLASM
     Dosage: VIA CHEMO-PORT IN THE RIGHT JUGULAR VEIN
     Route: 042
  2. AMPHOTERICIN-B [Suspect]
     Active Substance: AMPHOTERICIN B
     Indication: CANDIDA INFECTION
  3. FLUCONAZOLE. [Suspect]
     Active Substance: FLUCONAZOLE
     Indication: CANDIDA INFECTION
  4. VORICONAZOLE. [Concomitant]
     Active Substance: VORICONAZOLE
     Indication: CANDIDA INFECTION
  5. FLUCONAZOLE. [Suspect]
     Active Substance: FLUCONAZOLE
     Indication: CHORIORETINITIS
     Dosage: FOR 24 DAYS
     Route: 042
  6. BEVACIZUMAB. [Suspect]
     Active Substance: BEVACIZUMAB
     Indication: MALIGNANT ANORECTAL NEOPLASM
     Dosage: VIA CHEMO-PORT IN THE RIGHT JUGULAR VEIN
     Route: 042
  7. 5-FLUOROURACIL [Suspect]
     Active Substance: FLUOROURACIL
     Indication: MALIGNANT ANORECTAL NEOPLASM
     Dosage: VIA CHEMO-PORT IN THE RIGHT JUGULAR VEIN
     Route: 042
  8. AMPHOTERICIN-B [Suspect]
     Active Substance: AMPHOTERICIN B
     Indication: CHORIORETINITIS
     Dosage: (50 MICROG/ML); ADMINISTERED IN BOTH THE EYES
     Route: 050
  9. LEUCOVORIN. [Suspect]
     Active Substance: LEUCOVORIN
     Indication: MALIGNANT ANORECTAL NEOPLASM
     Dosage: VIA CHEMO-PORT IN THE RIGHT JUGULAR VEIN
     Route: 042
  10. VORICONAZOLE. [Concomitant]
     Active Substance: VORICONAZOLE
     Indication: CHORIORETINITIS
     Dosage: FOR 21 DAYS
     Route: 048

REACTIONS (3)
  - Chorioretinitis [Recovered/Resolved]
  - Candida infection [Recovered/Resolved]
  - Drug ineffective [Unknown]
